FAERS Safety Report 4592961-5 (Version None)
Quarter: 2005Q1

REPORT INFORMATION
  Report Type: 
  Country: None (occurrence: None)
  Receive Date: 20050228
  Receipt Date: 20050223
  Transmission Date: 20050727
  Serious: Yes (Other)
  Sender: FDA-Public Use
  Company Number: DE-GLAXOSMITHKLINE-D0045977A

PATIENT

DRUGS (2)
  1. LAMICTAL [Suspect]
     Route: 065
  2. ORFIRIL [Concomitant]
     Route: 065

REACTIONS (2)
  - ANAPHYLACTIC REACTION [None]
  - SKIN REACTION [None]
